FAERS Safety Report 8965540 (Version 1)
Quarter: 2012Q4

REPORT INFORMATION
  Report Type: Spontaneous
  Country: US (occurrence: None)
  Receive Date: 20121212
  Receipt Date: 20121212
  Transmission Date: 20130627
  Serious: Yes (Other)
  Sender: FDA-Public Use
  Company Number: None

PATIENT
  Sex: Female
  Weight: 59.24 kg

DRUGS (1)
  1. MEGESTROL [Suspect]

REACTIONS (3)
  - Weight decreased [None]
  - Abdominal distension [None]
  - Abdominal pain [None]
